FAERS Safety Report 9637675 (Version 1)
Quarter: 2013Q4

REPORT INFORMATION
  Report Type: Spontaneous
  Country: BE (occurrence: BE)
  Receive Date: 20131022
  Receipt Date: 20131022
  Transmission Date: 20140711
  Serious: Yes (Hospitalization)
  Sender: FDA-Public Use
  Company Number: BE-AMGEN-BELSP2013072903

PATIENT
  Age: 79 Year
  Sex: Female
  Weight: 83 kg

DRUGS (14)
  1. XGEVA [Suspect]
     Indication: METASTASES TO BONE
     Dosage: 120 MG, QMO
     Route: 058
     Dates: start: 20131007
  2. LISINOPRIL [Concomitant]
     Indication: HYPERTENSION
     Dosage: 20 MG, QD, 0.5 TAB, IN THE MORNING
  3. ASAFLOW [Concomitant]
     Dosage: 80 MG, QD, IN THE MORNING
  4. PANTOMED                           /00178901/ [Concomitant]
     Dosage: 20 MG, QD, IN THE MORNING
  5. UNI DIAMICRON [Concomitant]
     Indication: DIABETES MELLITUS
     Dosage: 60 MG, QD, 1 TAB, IN THE MORNING
  6. DORMONOCT [Concomitant]
     Dosage: 2 MG, QD, 1 TAB, IN THE EVENING
  7. MIRTAZAPINE [Concomitant]
     Indication: DEPRESSION
     Dosage: 15 MG, QD, IN THE EVENING
  8. CALCIUM [Concomitant]
     Dosage: 1 G, QD
  9. AROMASIN [Concomitant]
     Dosage: 1, QD
  10. MS DIRECT [Concomitant]
     Dosage: 10 MG, QID, IF EXPERIENCING PAIN
  11. MEDROL                             /00049601/ [Concomitant]
     Indication: METASTATIC PAIN
     Dosage: 32 MG, QD
     Route: 058
  12. ACTRAPID                           /00646001/ [Concomitant]
     Dosage: UNK UNK, AS NECESSARY
  13. DUROGESIC [Concomitant]
     Dosage: 25 MUG/ 72 HRS
     Route: 062
  14. D-CURE [Concomitant]
     Dosage: 1 AMPOULE, QWK

REACTIONS (11)
  - General physical health deterioration [Unknown]
  - Inflammation [Unknown]
  - Blood creatine phosphokinase abnormal [Unknown]
  - Hypochromic anaemia [Unknown]
  - Malnutrition [Unknown]
  - Hepatic steatosis [Unknown]
  - Vitamin D deficiency [Unknown]
  - Decreased appetite [Unknown]
  - Back pain [Unknown]
  - Headache [Unknown]
  - Hypocalcaemia [Unknown]
